FAERS Safety Report 8202573 (Version 9)
Quarter: 2012Q4

REPORT INFORMATION
  Report Type: 
  Country: BR (occurrence: BR)
  Receive Date: 20111027
  Receipt Date: 20121105
  Transmission Date: 20130627
  Serious: Yes (Death, Hospitalization)
  Sender: FDA-Public Use
  Company Number: BR-ROCHE-1007020

PATIENT
  Sex: Female

DRUGS (4)
  1. XOLAIR [Suspect]
     Indication: BRONCHITIS
     Route: 058
     Dates: start: 2010
  2. XOLAIR [Suspect]
     Indication: DYSPNOEA
  3. FORASEQ [Suspect]
     Indication: ASTHMA
     Dosage: 12/400 mcg
     Route: 065
  4. PREDNISONE [Concomitant]
     Route: 065

REACTIONS (13)
  - Asthma [Recovering/Resolving]
  - Bronchitis [Unknown]
  - Dyspnoea [Recovering/Resolving]
  - Insomnia [Recovering/Resolving]
  - Fatigue [Recovering/Resolving]
  - Chest pain [Recovering/Resolving]
  - Back pain [Recovering/Resolving]
  - Wheezing [Recovering/Resolving]
  - Drug ineffective [Recovering/Resolving]
  - Hypertension [Recovering/Resolving]
  - Speech disorder [Unknown]
  - Death [Fatal]
  - Activities of daily living impaired [None]
